FAERS Safety Report 5347489-1 (Version None)
Quarter: 2007Q2

REPORT INFORMATION
  Report Type: 
  Country: None (occurrence: None)
  Receive Date: 20070606
  Receipt Date: 20070529
  Transmission Date: 20071010
  Serious: Yes (Other)
  Sender: FDA-Public Use
  Company Number: US-ASTRAZENECA-2003UW00061

PATIENT
  Age: 77 Year
  Sex: Female
  Weight: 73.2 kg

DRUGS (8)
  1. TOPROL-XL [Suspect]
     Indication: HYPERTENSION
     Dosage: 50 MG IN AM AND 25 MG PM
     Route: 048
     Dates: start: 20020913
  2. ASPIRIN [Concomitant]
  3. MVI WITH IRON [Concomitant]
  4. VITAMIN B6 [Concomitant]
  5. GARLIC [Concomitant]
  6. FUROSEMIDE [Concomitant]
  7. COSOPT [Concomitant]
  8. VITAMIN CAP [Concomitant]

REACTIONS (5)
  - ANGLE CLOSURE GLAUCOMA [None]
  - BLOOD CHOLESTEROL INCREASED [None]
  - DIZZINESS [None]
  - MUSCULOSKELETAL PAIN [None]
  - PAIN IN EXTREMITY [None]
